FAERS Safety Report 8276145-5 (Version None)
Quarter: 2012Q2

REPORT INFORMATION
  Report Type: 
  Country: None (occurrence: None)
  Receive Date: 20120412
  Receipt Date: 20120410
  Transmission Date: 20120825
  Serious: No
  Sender: FDA-Public Use
  Company Number: US-B.I. PHARMACEUTICALS,INC./RIDGEFIELD-2012-BP-06731BP

PATIENT
  Age: 89 Year
  Sex: Male

DRUGS (2)
  1. PRADAXA [Suspect]
     Indication: ATRIAL FIBRILLATION
     Dosage: 300 MG
     Route: 048
     Dates: start: 20120101, end: 20120301
  2. PRADAXA [Suspect]
     Dosage: 150 MG
     Route: 048
     Dates: start: 20120301

REACTIONS (5)
  - CONTUSION [None]
  - PHARYNGEAL HAEMORRHAGE [None]
  - BLOOD URINE PRESENT [None]
  - LIGAMENT SPRAIN [None]
  - EPISTAXIS [None]
